FAERS Safety Report 7200426-7 (Version None)
Quarter: 2010Q4

REPORT INFORMATION
  Report Type: 
  Country: None (occurrence: None)
  Receive Date: 20101228
  Receipt Date: 20101217
  Transmission Date: 20110411
  Serious: Yes (Other)
  Sender: FDA-Public Use
  Company Number: SI-MERCK-1012USA03111

PATIENT
  Age: 55 Year
  Sex: Female

DRUGS (4)
  1. JANUVIA [Suspect]
     Indication: TYPE 2 DIABETES MELLITUS
     Route: 048
     Dates: start: 20100212, end: 20100217
  2. APROVEL [Concomitant]
     Route: 048
     Dates: start: 20080101
  3. ELTROXIN [Concomitant]
     Route: 048
     Dates: start: 20070101
  4. TELFAST [Concomitant]
     Route: 048
     Dates: start: 20070101

REACTIONS (2)
  - BLINDNESS [None]
  - RETINAL ARTERY THROMBOSIS [None]
